FAERS Safety Report 14423863 (Version 5)
Quarter: 2018Q2

REPORT INFORMATION
  Report Type: Report from Study
  Country: US (occurrence: US)
  Receive Date: 20180123
  Receipt Date: 20180504
  Transmission Date: 20180711
  Serious: Yes (Hospitalization)
  Sender: FDA-Public Use
  Company Number: US-BRISTOL-MYERS SQUIBB COMPANY-BMS-2018-005560

PATIENT
  Age: 50 Year
  Sex: Male
  Weight: 75.93 kg

DRUGS (14)
  1. COLACE [Concomitant]
     Active Substance: DOCUSATE SODIUM
     Indication: CONSTIPATION
     Dosage: 100 MG, PRN
     Route: 048
     Dates: start: 20160801
  2. LASIX [Concomitant]
     Active Substance: FUROSEMIDE
     Indication: OEDEMA
     Dosage: 10 MG, UNK
     Route: 048
     Dates: start: 20180103
  3. AMBIEN [Concomitant]
     Active Substance: ZOLPIDEM TARTRATE
     Indication: INSOMNIA
     Dosage: 5 MG, PRN
     Route: 048
     Dates: start: 20160601
  4. DEXAMETHASONE. [Concomitant]
     Active Substance: DEXAMETHASONE
     Indication: PREMEDICATION
     Dosage: 8 MG, QD
     Route: 048
     Dates: start: 20170905, end: 20170907
  5. OXYCODONE HYDROCHLORIDE. [Concomitant]
     Active Substance: OXYCODONE HYDROCHLORIDE
     Indication: FLANK PAIN
     Route: 065
  6. SODIUM CHLORIDE. [Concomitant]
     Active Substance: SODIUM CHLORIDE
     Indication: TACHYCARDIA
     Dosage: 500 ML, UNK
     Route: 042
     Dates: start: 20180103, end: 20180103
  7. TUMS                               /00193601/ [Concomitant]
     Active Substance: CALCIUM CARBONATE\MAGNESIUM CARBONATE\MAGNESIUM TRISILICATE
     Indication: DYSPEPSIA
     Dosage: 1 TAB, PRN
     Route: 048
     Dates: start: 20171028
  8. NIVOLUMAB [Suspect]
     Active Substance: NIVOLUMAB
     Indication: PRODUCT USED FOR UNKNOWN INDICATION
     Dosage: 480 UNK, UNK,IN 4 WEEK
     Route: 065
     Dates: start: 20180328
  9. NIVOLUMAB [Suspect]
     Active Substance: NIVOLUMAB
     Indication: SMALL CELL LUNG CANCER
     Dosage: 360 MG, UNK,1IN 3WK
     Route: 042
     Dates: start: 20170927, end: 20171018
  10. NIVOLUMAB [Suspect]
     Active Substance: NIVOLUMAB
     Indication: PRODUCT USED FOR UNKNOWN INDICATION
     Dosage: 480 MG, UNK, 1 IN 4WK
     Route: 042
     Dates: start: 20171108, end: 20180131
  11. ROVALPITUZUMAB TESIRINE [Suspect]
     Active Substance: ROVALPITUZUMAB TESIRINE
     Indication: SMALL CELL LUNG CANCER
     Dosage: 0.3 MG/KG, Q6WK
     Route: 042
     Dates: start: 20170906, end: 20170906
  12. ALPRAZOLAM. [Concomitant]
     Active Substance: ALPRAZOLAM
     Indication: DEPRESSION
     Dosage: 0.25 MG, PRN
     Route: 048
     Dates: start: 20160601
  13. OXYCODONE HYDROCHLORIDE. [Concomitant]
     Active Substance: OXYCODONE HYDROCHLORIDE
     Indication: BACK PAIN
     Dosage: 325 MG, PRN
     Route: 048
     Dates: start: 20160801
  14. ROVALPITUZUMAB TESIRINE [Suspect]
     Active Substance: ROVALPITUZUMAB TESIRINE
     Indication: PRODUCT USED FOR UNKNOWN INDICATION
     Dosage: 0.3 MG/KG, Q6WK
     Route: 042
     Dates: start: 20171018, end: 20171018

REACTIONS (3)
  - Pleural effusion [Not Recovered/Not Resolved]
  - Face oedema [Not Recovered/Not Resolved]
  - Dehydration [Recovered/Resolved]

NARRATIVE: CASE EVENT DATE: 20180110
